FAERS Safety Report 4968065-6 (Version None)
Quarter: 2006Q2

REPORT INFORMATION
  Report Type: 
  Country: None (occurrence: None)
  Receive Date: 20060410
  Receipt Date: 20040804
  Transmission Date: 20061013
  Serious: Yes (Hospitalization, Disabling)
  Sender: FDA-Public Use
  Company Number: US-ROCHE-376777

PATIENT
  Age: 22 Year
  Sex: Male
  Weight: 107 kg

DRUGS (3)
  1. ACCUTANE [Suspect]
     Indication: ACNE
     Route: 048
     Dates: start: 19831201, end: 19840112
  2. ACCUTANE [Suspect]
     Dosage: ALTERNATE DOSING
     Route: 048
     Dates: start: 19840112, end: 19840223
  3. ACCUTANE [Suspect]
     Route: 048
     Dates: start: 19840223, end: 19840515

REACTIONS (72)
  - ABDOMINAL DISTENSION [None]
  - AGGRESSION [None]
  - ANAEMIA [None]
  - ANXIETY [None]
  - ARTHRALGIA [None]
  - ASPARTATE AMINOTRANSFERASE INCREASED [None]
  - ASTHENIA [None]
  - ASTIGMATISM [None]
  - ATELECTASIS [None]
  - BACK PAIN [None]
  - CHEST PAIN [None]
  - COLITIS [None]
  - COLITIS ULCERATIVE [None]
  - CYST [None]
  - DEHYDRATION [None]
  - DEPRESSION [None]
  - DIVERTICULITIS [None]
  - DIVERTICULUM [None]
  - DRY SKIN [None]
  - DYSPHONIA [None]
  - DYSURIA [None]
  - EPICONDYLITIS [None]
  - ERUCTATION [None]
  - EYE PAIN [None]
  - EYE PRURITUS [None]
  - FAT NECROSIS [None]
  - FATIGUE [None]
  - GASTROINTESTINAL DISORDER [None]
  - GASTROOESOPHAGEAL REFLUX DISEASE [None]
  - GENITAL BURNING SENSATION [None]
  - HAEMATEMESIS [None]
  - HAEMOPTYSIS [None]
  - HALO VISION [None]
  - HEADACHE [None]
  - HEPATIC ENZYME INCREASED [None]
  - HUNGER [None]
  - ILEITIS [None]
  - ILEUS [None]
  - IMPAIRED WORK ABILITY [None]
  - INTESTINAL HAEMORRHAGE [None]
  - IRRITABILITY [None]
  - IRRITABLE BOWEL SYNDROME [None]
  - LEUKOPENIA [None]
  - LIVER DISORDER [None]
  - MULTI-ORGAN DISORDER [None]
  - MYOPIA [None]
  - OEDEMA PERIPHERAL [None]
  - PANCYTOPENIA [None]
  - PENILE DISCHARGE [None]
  - PROCTALGIA [None]
  - PRURITUS ANI [None]
  - SCIATICA [None]
  - SEBORRHOEIC KERATOSIS [None]
  - SHOULDER PAIN [None]
  - SINUS BRADYCARDIA [None]
  - SINUSITIS [None]
  - SKIN DISORDER [None]
  - SKIN PAPILLOMA [None]
  - SLEEP DISORDER [None]
  - SNEEZING [None]
  - SNORING [None]
  - SOCIAL PROBLEM [None]
  - STRESS [None]
  - TENDONITIS [None]
  - TESTICULAR PAIN [None]
  - THROMBOCYTOPENIA [None]
  - UMBILICAL HERNIA [None]
  - UPPER RESPIRATORY TRACT INFECTION [None]
  - VIRAL INFECTION [None]
  - VISION BLURRED [None]
  - WEIGHT DECREASED [None]
  - WEIGHT INCREASED [None]
